FAERS Safety Report 9693078 (Version 1)
Quarter: 2013Q4

REPORT INFORMATION
  Report Type: Spontaneous
  Country: US (occurrence: US)
  Receive Date: 20131118
  Receipt Date: 20131118
  Transmission Date: 20140711
  Serious: Yes (Hospitalization)
  Sender: FDA-Public Use
  Company Number: US-BAYER-2013-139665

PATIENT
  Age: 22 Year
  Sex: Female
  Weight: 70.75 kg

DRUGS (3)
  1. BEYAZ [Suspect]
     Route: 048
  2. YAZ [Suspect]
     Route: 048
  3. IBUPROFEN [Concomitant]
     Dosage: UNK

REACTIONS (1)
  - Pulmonary embolism [None]
